FAERS Safety Report 14665995 (Version 1)
Quarter: 2018Q1

REPORT INFORMATION
  Report Type: Spontaneous
  Country: DE (occurrence: DE)
  Receive Date: 20180321
  Receipt Date: 20180321
  Transmission Date: 20180509
  Serious: Yes (Hospitalization)
  Sender: FDA-Public Use
  Company Number: DE-TEVA-2018-DE-854848

PATIENT
  Age: 36 Year
  Sex: Female
  Weight: 52 kg

DRUGS (3)
  1. QUETIAPIN PROLONG [Concomitant]
     Active Substance: QUETIAPINE
     Indication: SLEEP DISORDER
  2. QUETIAPIN PROLONG [Concomitant]
     Active Substance: QUETIAPINE
     Indication: RESTLESSNESS
     Dosage: 50 MILLIGRAM DAILY;
     Dates: start: 20180131, end: 20180207
  3. VENLAFAXIN-RATIOPHARM 150MG RETARDTABLETTEN [Suspect]
     Active Substance: VENLAFAXINE HYDROCHLORIDE
     Indication: DEPRESSION
     Dosage: 300 MILLIGRAM DAILY;
     Route: 048
     Dates: start: 20180123, end: 20180131

REACTIONS (7)
  - Pollakiuria [Recovered/Resolved]
  - Insomnia [Recovered/Resolved]
  - Headache [Recovered/Resolved]
  - Tension [Recovered/Resolved]
  - Overdose [Recovered/Resolved]
  - Tremor [Recovered/Resolved]
  - Dizziness [Recovered/Resolved]

NARRATIVE: CASE EVENT DATE: 201801
